FAERS Safety Report 8789827 (Version 1)
Quarter: 2012Q4

REPORT INFORMATION
  Report Type: 
  Country: JP (occurrence: JP)
  Receive Date: 20120917
  Receipt Date: 20120917
  Transmission Date: 20130627
  Serious: Yes (Hospitalization)
  Sender: FDA-Public Use
  Company Number: JP-AMGEN-JPNSP2012052428

PATIENT
  Age: 78 Year
  Sex: Male
  Weight: 59 kg

DRUGS (12)
  1. VECTIBIX [Suspect]
     Indication: LARGE INTESTINE CARCINOMA
     Dosage: 350 mg, q2wk
     Route: 041
     Dates: start: 20120726
  2. VECTIBIX [Suspect]
     Indication: RECTAL CANCER
     Route: 041
     Dates: start: 20120726
  3. DEXART [Concomitant]
     Indication: PREMEDICATION
     Route: 041
     Dates: start: 20120726, end: 20120726
  4. GRANISETRON [Concomitant]
     Indication: PREMEDICATION
     Dosage: 3 mg, q2wk
     Route: 041
     Dates: start: 20120726, end: 20120726
  5. OXYCONTIN [Concomitant]
     Indication: ANALGESIC THERAPY
     Dosage: 5 mg, qd
     Route: 048
  6. LORFENAMIN [Concomitant]
     Indication: ANALGESIC THERAPY
     Dosage: 60 mg, qd
     Route: 048
  7. REBAMIPIDE [Concomitant]
     Indication: ANALGESIC THERAPY
     Dosage: 100 mg, qd
     Route: 048
  8. RIBALL [Concomitant]
     Indication: HYPERURICAEMIA
     Dosage: 100 mg, qd
     Route: 048
  9. MAGMITT [Concomitant]
     Indication: CONSTIPATION
     Dosage: 350 mg, qd
     Route: 048
  10. WARFARIN POTASSIUM [Concomitant]
     Indication: ATRIAL FIBRILLATION
     Dosage: 0.25 mg, qd
     Route: 048
  11. NU-LOTAN [Concomitant]
     Indication: HYPERTENSION
     Dosage: 50 mg, qd
     Route: 048
  12. MINOPEN [Concomitant]
     Indication: PROPHYLAXIS
     Dosage: 100 mg, qd
     Route: 048
     Dates: start: 20120726

REACTIONS (1)
  - Loss of consciousness [Recovered/Resolved]
